FAERS Safety Report 4477704-8 (Version None)
Quarter: 2004Q4

REPORT INFORMATION
  Report Type: 
  Country: None (occurrence: None)
  Receive Date: 20041014
  Receipt Date: 20040928
  Transmission Date: 20050328
  Serious: Yes (Life-Threatening)
  Sender: FDA-Public Use
  Company Number: 2004-BP-08809RO

PATIENT
  Age: 25 Year

DRUGS (2)
  1. METHADONE HCL TABLETS USP, 10 MG (TETHADONE HYDROCHLORIDE) [Suspect]
     Indication: DRUG DEPENDENCE
     Dosage: 100 MG X 2/DAY (NR), NR
  2. METHADONE HCL TABLETS USP, 10 MG (TETHADONE HYDROCHLORIDE) [Suspect]
     Indication: PROPHYLAXIS
     Dosage: 100 MG X 2/DAY (NR), NR

REACTIONS (3)
  - CARDIO-RESPIRATORY ARREST [None]
  - TORSADE DE POINTES [None]
  - VENTRICULAR ARRHYTHMIA [None]
